FAERS Safety Report 20925601 (Version 1)
Quarter: 2022Q2

REPORT INFORMATION
  Report Type: Spontaneous
  Country: US (occurrence: US)
  Receive Date: 20220607
  Receipt Date: 20220607
  Transmission Date: 20220720
  Serious: No
  Sender: FDA-Public Use
  Company Number: US-PERRIGO-21US006444

PATIENT
  Age: 74 Year
  Sex: Female
  Weight: 45.351 kg

DRUGS (11)
  1. MINOXIDIL [Suspect]
     Active Substance: MINOXIDIL
     Indication: Alopecia
     Dosage: 1/2 CAPFUL, QD
     Route: 061
     Dates: start: 20210506, end: 20210617
  2. LEVOTHYROXINE [Concomitant]
     Active Substance: LEVOTHYROXINE
     Indication: Autoimmune thyroiditis
     Dosage: UNKNOWN, UNKNOWN
     Route: 065
     Dates: start: 1998
  3. DIAZEPAM [Concomitant]
     Active Substance: DIAZEPAM
     Indication: Stress
     Dosage: 5 MG, UNKNOWN
     Route: 065
     Dates: start: 2010
  4. DULOXETINE [Concomitant]
     Active Substance: DULOXETINE
     Indication: Depression
     Dosage: UNKNOWN, UNKNOWN
     Route: 065
     Dates: start: 2010
  5. GABAPENTIN [Concomitant]
     Active Substance: GABAPENTIN
     Indication: Neuropathy peripheral
     Dosage: 300 MG. UNKNOWN
     Route: 065
     Dates: start: 2003
  6. LEVETIRACETAM [Concomitant]
     Active Substance: LEVETIRACETAM
     Indication: Pain
     Dosage: 500 MG, UNKNOWN
     Route: 065
     Dates: start: 201807
  7. METHADONE [Concomitant]
     Active Substance: METHADONE HYDROCHLORIDE
     Indication: Blood cholesterol increased
     Dosage: UNKNOWN, UNKNOWN
     Route: 065
     Dates: start: 202002
  8. EZETIMIBE [Concomitant]
     Active Substance: EZETIMIBE
     Indication: Blood cholesterol increased
     Dosage: 10 MG, UNKNOWN
     Route: 065
     Dates: start: 201805
  9. TRAZODONE [Concomitant]
     Active Substance: TRAZODONE HYDROCHLORIDE
     Indication: Sleep disorder
     Dosage: 75 MG, UNKNOWN
     Route: 065
     Dates: start: 1988
  10. VITAMINS NOS [Concomitant]
     Active Substance: VITAMINS
     Indication: Supplementation therapy
     Dosage: UNKNOWN, UNKNOWN
     Route: 065
     Dates: start: 2008
  11. PILOCARPINE [Concomitant]
     Active Substance: PILOCARPINE
     Indication: Dry eye
     Dosage: 5 MG, UNKNOWN
     Route: 065
     Dates: start: 202012

REACTIONS (4)
  - Condition aggravated [Not Recovered/Not Resolved]
  - Product administered at inappropriate site [Not Recovered/Not Resolved]
  - Nail discolouration [Not Recovered/Not Resolved]
  - Off label use [Recovered/Resolved]

NARRATIVE: CASE EVENT DATE: 20210506
